FAERS Safety Report 5423254-1 (Version None)
Quarter: 2007Q3

REPORT INFORMATION
  Report Type: 
  Country: None (occurrence: None)
  Receive Date: 20070730
  Receipt Date: 20070503
  Transmission Date: 20080115
  Serious: Yes (Other)
  Sender: FDA-Public Use
  Company Number: 200710249BWH

PATIENT
  Age: 48 Year
  Sex: Male

DRUGS (1)
  1. AVELOX [Suspect]
     Indication: PHARYNGITIS STREPTOCOCCAL
     Dosage: 400 MG, QD, ORAL
     Route: 048
     Dates: start: 20070115, end: 20070118

REACTIONS (9)
  - ABASIA [None]
  - FEELING ABNORMAL [None]
  - GAIT DISTURBANCE [None]
  - MUSCLE SPASMS [None]
  - OEDEMA PERIPHERAL [None]
  - PAIN IN EXTREMITY [None]
  - TENDON PAIN [None]
  - TENDONITIS [None]
  - WEIGHT BEARING DIFFICULTY [None]
